FAERS Safety Report 7834130-9 (Version None)
Quarter: 2011Q4

REPORT INFORMATION
  Report Type: 
  Country: None (occurrence: None)
  Receive Date: 20111024
  Receipt Date: 20111012
  Transmission Date: 20120403
  Serious: Yes (Hospitalization)
  Sender: FDA-Public Use
  Company Number: US-EISAI INC-E7273-00256-CLI-US

PATIENT
  Sex: Male
  Weight: 55 kg

DRUGS (1)
  1. TARGRETIN [Suspect]
     Route: 048
     Dates: start: 20110809, end: 20110916

REACTIONS (2)
  - ABDOMINAL PAIN [None]
  - DEHYDRATION [None]
